FAERS Safety Report 6877565-3 (Version None)
Quarter: 2010Q3

REPORT INFORMATION
  Report Type: 
  Country: None (occurrence: None)
  Receive Date: 20100727
  Receipt Date: 20100411
  Transmission Date: 20110219
  Serious: No
  Sender: FDA-Public Use
  Company Number: US-ABBOTT-10P-163-0634010-00

PATIENT
  Age: 62 Year
  Sex: Female
  Weight: 59.474 kg

DRUGS (6)
  1. SYNTHROID [Suspect]
     Indication: HYPOTHYROIDISM
     Route: 048
     Dates: start: 19780101
  2. TAMBICOR [Concomitant]
     Indication: HEART RATE IRREGULAR
  3. RHYTHMOL [Concomitant]
     Indication: HEART RATE IRREGULAR
  4. PREMARIN [Concomitant]
     Indication: PRODUCT USED FOR UNKNOWN INDICATION
  5. ESTRACE [Concomitant]
     Indication: PRODUCT USED FOR UNKNOWN INDICATION
  6. SOTALOL HCL [Concomitant]
     Indication: PRODUCT USED FOR UNKNOWN INDICATION
     Dosage: 1/2 TAB TWICE DAILY

REACTIONS (1)
  - ALOPECIA [None]
